FAERS Safety Report 7702953-2 (Version None)
Quarter: 2011Q3

REPORT INFORMATION
  Report Type: 
  Country: None (occurrence: None)
  Receive Date: 20110823
  Receipt Date: 20110810
  Transmission Date: 20111222
  Serious: No
  Sender: FDA-Public Use
  Company Number: PHHY2011US68682

PATIENT
  Sex: Female

DRUGS (1)
  1. TASIGNA [Suspect]
     Indication: CHRONIC MYELOID LEUKAEMIA
     Dosage: 200 MG, EVERY 12 HOURS ON EMPTY STOMACH
     Route: 048
     Dates: start: 20100901

REACTIONS (7)
  - FATIGUE [None]
  - MYALGIA [None]
  - HEADACHE [None]
  - DYSPEPSIA [None]
  - PAIN [None]
  - CARDIAC FLUTTER [None]
  - OESOPHAGEAL SPASM [None]
